FAERS Safety Report 9285223 (Version 1)
Quarter: 2013Q2

REPORT INFORMATION
  Report Type: Spontaneous
  Country: US (occurrence: US)
  Receive Date: 20130513
  Receipt Date: 20130513
  Transmission Date: 20140414
  Serious: Yes (Other)
  Sender: FDA-Public Use
  Company Number: US-SANOFI-AVENTIS-2013SA047439

PATIENT
  Age: 75 Year
  Sex: Female

DRUGS (3)
  1. LANTUS SOLOSTAR [Suspect]
     Indication: DIABETES MELLITUS
     Dosage: THERAPY START DATE - 2 YEARS AGO DOSE:32 UNIT(S)
     Route: 051
  2. SOLOSTAR [Suspect]
     Indication: DIABETES MELLITUS
     Dosage: THERAPY START DATE -2 YEARS AGO
  3. NOVOLOG [Concomitant]

REACTIONS (2)
  - Cerebrovascular accident [Unknown]
  - Visual acuity reduced [Unknown]
